FAERS Safety Report 6683165-0 (Version None)
Quarter: 2010Q2

REPORT INFORMATION
  Report Type: 
  Country: None (occurrence: None)
  Receive Date: 20100415
  Receipt Date: 20100405
  Transmission Date: 20101027
  Serious: Yes (Hospitalization, Other)
  Sender: FDA-Public Use
  Company Number: BE-PFIZER INC-2010043420

PATIENT
  Age: 55 Year
  Sex: Female

DRUGS (7)
  1. LINEZOLID [Suspect]
     Dosage: 600 MG, 2X/DAY
  2. MEROPENEM [Concomitant]
     Dosage: 1 G, 3X/DAY
  3. VITAMIN D [Concomitant]
  4. DOMPERIDONE [Concomitant]
  5. ESOMEPRAZOLE [Concomitant]
  6. ENOXAPARIN SODIUM [Concomitant]
  7. DORZOLAMIDE HYDROCHLORIDE AND TIMOLOL MALEATE [Suspect]
     Route: 047

REACTIONS (2)
  - HEPATIC FAILURE [None]
  - LACTIC ACIDOSIS [None]
